FAERS Safety Report 14297425 (Version 1)
Quarter: 2017Q4

REPORT INFORMATION
  Report Type: Spontaneous
  Country: US (occurrence: US)
  Receive Date: 20171218
  Receipt Date: 20171218
  Transmission Date: 20180321
  Serious: Yes (Hospitalization)
  Sender: FDA-Public Use
  Company Number: US-DSJP-DSU-2017-148042

PATIENT

DRUGS (1)
  1. BENICAR HCT [Suspect]
     Active Substance: HYDROCHLOROTHIAZIDE\OLMESARTAN MEDOXOMIL
     Indication: HYPERTENSION
     Dosage: 40/25MG, QD
     Route: 048
     Dates: start: 20040324, end: 20170830

REACTIONS (4)
  - Gastrooesophageal reflux disease [Unknown]
  - Constipation [Recovered/Resolved]
  - Faeces discoloured [Unknown]
  - Sprue-like enteropathy [Unknown]

NARRATIVE: CASE EVENT DATE: 2005
